FAERS Safety Report 15481400 (Version 1)
Quarter: 2020Q3

REPORT INFORMATION
  Report Type: Spontaneous
  Country: NL (occurrence: NL)
  Receive Date: 20181010
  Receipt Date: 20181010
  Transmission Date: 20201104
  Serious: Yes (Other)
  Sender: FDA-Public Use
  Company Number: NL-LUPIN PHARMACEUTICALS INC.-2018-06940

PATIENT
  Age: 75 Year
  Sex: Female

DRUGS (7)
  1. RIFAMPIN. [Suspect]
     Active Substance: RIFAMPIN
     Indication: TUBERCULOUS TENOSYNOVITIS
     Dosage: UNK
     Route: 065
  2. CLARITHROMYCIN. [Suspect]
     Active Substance: CLARITHROMYCIN
     Indication: TUBERCULOUS TENOSYNOVITIS
     Dosage: UNK
     Route: 065
  3. MOXIFLOXACIN. [Suspect]
     Active Substance: MOXIFLOXACIN
     Indication: TUBERCULOUS TENOSYNOVITIS
     Dosage: UNK
     Route: 065
  4. AMIKACIN. [Suspect]
     Active Substance: AMIKACIN
     Indication: TUBERCULOUS TENOSYNOVITIS
     Dosage: UNK
     Route: 065
  5. INTERFERON GAMMA NOS [Suspect]
     Active Substance: INTERFERON GAMMA
     Indication: TUBERCULOUS TENOSYNOVITIS
     Dosage: UNK
     Route: 058
  6. ETHAMBUTOL [Suspect]
     Active Substance: ETHAMBUTOL HYDROCHLORIDE
     Indication: TUBERCULOUS TENOSYNOVITIS
     Dosage: UNK
     Route: 065
  7. CLOFAZIMINE [Suspect]
     Active Substance: CLOFAZIMINE
     Indication: TUBERCULOUS TENOSYNOVITIS
     Dosage: UNK
     Route: 065

REACTIONS (3)
  - Influenza [Unknown]
  - Visual impairment [Unknown]
  - Skin reaction [Unknown]
